FAERS Safety Report 8448184-2 (Version None)
Quarter: 2012Q2

REPORT INFORMATION
  Report Type: 
  Country: None (occurrence: None)
  Receive Date: 20120612
  Receipt Date: 20120530
  Transmission Date: 20120825
  Serious: Yes (Hospitalization)
  Sender: FDA-Public Use
  Company Number: CIO12009257

PATIENT
  Sex: Female

DRUGS (1)
  1. PRO-HEALTH COMPLETE ANTICAVITY RINSE, CLEAN MINT FLAVOR (CETYLPYRIDINI [Suspect]
     Dosage: 1 APPLIC, UNK FREQ, INTRAORAL
     Dates: end: 20120525

REACTIONS (6)
  - TONGUE DISCOLOURATION [None]
  - TONGUE PARALYSIS [None]
  - TREMOR [None]
  - WEIGHT DECREASED [None]
  - SWOLLEN TONGUE [None]
  - GLOSSITIS [None]
